FAERS Safety Report 6385261-4 (Version None)
Quarter: 2009Q4

REPORT INFORMATION
  Report Type: 
  Country: None (occurrence: None)
  Receive Date: 20091002
  Receipt Date: 20080725
  Transmission Date: 20100525
  Serious: No
  Sender: FDA-Public Use
  Company Number: US-ASTRAZENECA-2008UW15450

PATIENT
  Age: 74 Year
  Sex: Female
  Weight: 45.4 kg

DRUGS (4)
  1. ARIMIDEX [Suspect]
     Indication: BREAST CANCER FEMALE
     Route: 048
     Dates: start: 20060428
  2. RED YEAST RICE [Concomitant]
  3. CO Q -10 [Concomitant]
  4. MULTI-VITAMINS [Concomitant]

REACTIONS (3)
  - COUGH [None]
  - OSTEOPOROSIS [None]
  - SPUTUM DISCOLOURED [None]
